FAERS Safety Report 8118895-7 (Version None)
Quarter: 2012Q1

REPORT INFORMATION
  Report Type: 
  Country: None (occurrence: None)
  Receive Date: 20120202
  Receipt Date: 20120120
  Transmission Date: 20120608
  Serious: Yes (Hospitalization, Other)
  Sender: FDA-Public Use
  Company Number: INT_00050_2012

PATIENT
  Age: 69 Year
  Sex: Female

DRUGS (2)
  1. ANTIHYPERTENSIVES [Concomitant]
  2. CEFTRIAXONE [Suspect]
     Indication: CELLULITIS
     Dosage: (2 G)

REACTIONS (8)
  - HAEMOGLOBIN DECREASED [None]
  - THROMBOCYTOPENIA [None]
  - PETECHIAE [None]
  - BLOOD LACTATE DEHYDROGENASE INCREASED [None]
  - MELAENA [None]
  - INTRA-ABDOMINAL HAEMATOMA [None]
  - SHOCK [None]
  - BLOOD CREATINE PHOSPHOKINASE INCREASED [None]
